FAERS Safety Report 25779498 (Version 1)
Quarter: 2025Q3

REPORT INFORMATION
  Report Type: Report from Study
  Country: BR (occurrence: BR)
  Receive Date: 20250909
  Receipt Date: 20250909
  Transmission Date: 20251020
  Serious: Yes (Other)
  Sender: Haleon PLC
  Company Number: BR-002147023-NVSC2025BR133188

PATIENT
  Age: 46 Year
  Sex: Female
  Weight: 115 kg

DRUGS (6)
  1. DICLOFENAC [Suspect]
     Active Substance: DICLOFENAC
     Indication: Product used for unknown indication
     Dosage: PATIENT ROA:UNKNOWN?1 DOSAGE FORM, QD
  2. SULFASALAZINE [Concomitant]
     Active Substance: SULFASALAZINE
     Indication: Ankylosing spondylitis
  3. COSENTYX [Suspect]
     Active Substance: SECUKINUMAB
     Indication: Ankylosing spondylitis
  4. DIPYRONE [Concomitant]
     Active Substance: DIPYRONE
     Indication: Product used for unknown indication
  5. SIBUTRAMINE [Concomitant]
     Active Substance: SIBUTRAMINE
     Indication: Obesity
  6. EUTHYROX [Concomitant]
     Active Substance: LEVOTHYROXINE SODIUM
     Indication: Autoimmune thyroiditis

REACTIONS (9)
  - Drug-induced liver injury [Recovered/Resolved]
  - Headache [Recovered/Resolved]
  - Hypersensitivity [Recovered/Resolved]
  - Vaginal discharge [Recovered/Resolved]
  - Pruritus [Recovered/Resolved]
  - Decreased immune responsiveness [Unknown]
  - Fatigue [Recovered/Resolved]
  - Rhinitis [Recovered/Resolved]
  - Nausea [Recovered/Resolved]
